FAERS Safety Report 13026482 (Version 3)
Quarter: 2017Q1

REPORT INFORMATION
  Report Type: Spontaneous
  Country: US (occurrence: US)
  Receive Date: 20161214
  Receipt Date: 20170209
  Transmission Date: 20170428
  Serious: No
  Sender: FDA-Public Use
  Company Number: US-GLAXOSMITHKLINE-US2016184463

PATIENT
  Age: 80 Year
  Sex: Female

DRUGS (1)
  1. VENTOLIN HFA [Suspect]
     Active Substance: ALBUTEROL SULFATE
     Indication: PRODUCT USED FOR UNKNOWN INDICATION
     Dosage: UNK
     Route: 055
     Dates: start: 201612

REACTIONS (4)
  - Wrong technique in product usage process [Recovered/Resolved]
  - Device use error [Recovered/Resolved]
  - Device issue [Recovered/Resolved]
  - Product cleaning inadequate [Recovered/Resolved]

NARRATIVE: CASE EVENT DATE: 20161212
